FAERS Safety Report 7420928-8 (Version None)
Quarter: 2011Q2

REPORT INFORMATION
  Report Type: 
  Country: None (occurrence: None)
  Receive Date: 20110418
  Receipt Date: 20110407
  Transmission Date: 20111010
  Serious: Yes (Congenital Anomaly)
  Sender: FDA-Public Use
  Company Number: B0713339A

PATIENT

DRUGS (3)
  1. SAQUINAVIR [Suspect]
     Indication: ANTIVIRAL PROPHYLAXIS
     Route: 064
  2. ZIDOVUDINE [Suspect]
     Indication: ANTIVIRAL PROPHYLAXIS
     Route: 064
  3. LAMIVUDINE [Suspect]
     Indication: ANTIVIRAL PROPHYLAXIS
     Route: 064

REACTIONS (3)
  - DRUG EXPOSURE DURING PREGNANCY [None]
  - TRISOMY 21 [None]
  - FALLOT'S TETRALOGY [None]
